FAERS Safety Report 6870646-X (Version None)
Quarter: 2010Q3

REPORT INFORMATION
  Report Type: 
  Country: None (occurrence: None)
  Receive Date: 20100723
  Receipt Date: 20100713
  Transmission Date: 20110219
  Serious: Yes (Other)
  Sender: FDA-Public Use
  Company Number: BR-ABBOTT-10P-020-0657790-00

PATIENT
  Sex: Female
  Weight: 73 kg

DRUGS (10)
  1. HUMIRA [Suspect]
     Indication: RHEUMATOID ARTHRITIS
     Route: 058
     Dates: start: 20091001
  2. METHOTREXATE [Concomitant]
     Indication: RHEUMATOID ARTHRITIS
     Route: 048
     Dates: start: 20070101
  3. FOLIC ACID [Concomitant]
     Indication: ANAEMIA PROPHYLAXIS
     Route: 048
     Dates: start: 20070101
  4. CALCIUM CARBONATE/VITAMIN D3 [Concomitant]
     Indication: BONE DISORDER
     Dosage: 600MG, IU
     Route: 048
     Dates: start: 20070101
  5. SODIUM ALENDRONATE [Concomitant]
     Indication: PRODUCT USED FOR UNKNOWN INDICATION
     Route: 048
     Dates: start: 20070101
  6. PREDNISOLONE 1.5MG, DIACEREIN 50MG, FAMOTIDINE 40 MG [Concomitant]
     Indication: PAIN
     Route: 048
     Dates: start: 20070101
  7. SIMVASTATIN [Concomitant]
     Indication: BLOOD CHOLESTEROL ABNORMAL
     Route: 048
     Dates: start: 20070101
  8. BEZAFIBRATE [Concomitant]
     Indication: BLOOD TRIGLYCERIDES
     Route: 048
     Dates: start: 20070101
  9. ESCITALOPRAM OXALATE [Concomitant]
     Indication: PANIC DISORDER
     Route: 048
     Dates: start: 20090101
  10. ALPRAZOLAM [Concomitant]
     Indication: PANIC DISORDER
     Route: 048
     Dates: start: 20090101

REACTIONS (5)
  - ABDOMINAL PAIN UPPER [None]
  - COUGH [None]
  - HERNIA [None]
  - INFLUENZA [None]
  - LIVER DISORDER [None]
